FAERS Safety Report 21890681 (Version 1)
Quarter: 2023Q1

REPORT INFORMATION
  Report Type: Spontaneous
  Country: US (occurrence: None)
  Receive Date: 20230119
  Receipt Date: 20230119
  Transmission Date: 20230418
  Serious: No
  Sender: FDA-Public Use
  Company Number: None

PATIENT
  Age: 69 Year
  Sex: Female

DRUGS (4)
  1. ENBREL [Suspect]
     Active Substance: ETANERCEPT
     Route: 058
  2. HUMIRA [Concomitant]
  3. ACTEMRA [Concomitant]
  4. ORENCIA [Concomitant]

REACTIONS (3)
  - Pruritus [None]
  - Therapy cessation [None]
  - Bone pain [None]

NARRATIVE: CASE EVENT DATE: 20220812
